FAERS Safety Report 8914200 (Version 3)
Quarter: 2012Q4

REPORT INFORMATION
  Report Type: 
  Country: US (occurrence: US)
  Receive Date: 20121119
  Receipt Date: 20121213
  Transmission Date: 20130627
  Serious: Yes (Hospitalization)
  Sender: FDA-Public Use
  Company Number: US-PFIZER INC-2012286608

PATIENT
  Age: 86 Year
  Sex: Female
  Weight: 62.59 kg

DRUGS (3)
  1. TIKOSYN [Suspect]
     Indication: CARDIAC DISORDER
     Dosage: 125 ug, 2x/day
  2. TIKOSYN [Suspect]
     Dosage: UNK
  3. CORGARD [Concomitant]
     Dosage: UNK, daily

REACTIONS (7)
  - Dizziness [Unknown]
  - Ear infection [Unknown]
  - Thyroid disorder [Unknown]
  - Blood potassium decreased [Unknown]
  - Blood calcium increased [Unknown]
  - Aphonia [Unknown]
  - Logorrhoea [Unknown]
